FAERS Safety Report 23159392 (Version 1)
Quarter: 2023Q4

REPORT INFORMATION
  Report Type: Spontaneous
  Country: DE (occurrence: DE)
  Receive Date: 20231108
  Receipt Date: 20231108
  Transmission Date: 20240110
  Serious: Yes (Death, Other)
  Sender: FDA-Public Use
  Company Number: DE-AMGEN-DEUSP2023195173

PATIENT

DRUGS (6)
  1. XGEVA [Suspect]
     Active Substance: DENOSUMAB
     Indication: Metastases to bone
     Dosage: UNK
     Route: 065
  2. RADIUM RA-223 DICHLORIDE [Suspect]
     Active Substance: RADIUM RA-223 DICHLORIDE
     Indication: Hormone-refractory prostate cancer
     Dosage: 55-KBQ (1.485 UCI)/KG, Q4WK
     Route: 042
  3. DOCETAXEL [Concomitant]
     Active Substance: DOCETAXEL\DOCETAXEL ANHYDROUS
     Indication: Hormone-refractory prostate cancer
  4. CABAZITAXEL [Concomitant]
     Active Substance: CABAZITAXEL
     Indication: Hormone-refractory prostate cancer
  5. ABIRATERONE [Concomitant]
     Active Substance: ABIRATERONE
     Indication: Hormone-refractory prostate cancer
  6. ENZALUTAMIDE [Concomitant]
     Active Substance: ENZALUTAMIDE
     Indication: Hormone-refractory prostate cancer

REACTIONS (15)
  - Death [Fatal]
  - Pancytopenia [Fatal]
  - Hormone-refractory prostate cancer [Unknown]
  - Pathological fracture [Unknown]
  - Thrombocytopenia [Unknown]
  - Fracture [Unknown]
  - General physical health deterioration [Unknown]
  - Bone disorder [Unknown]
  - Pain [Unknown]
  - Fatigue [Unknown]
  - Anaemia [Unknown]
  - Nausea [Unknown]
  - Back pain [Unknown]
  - Diarrhoea [Unknown]
  - Bone pain [Unknown]
